FAERS Safety Report 6741799-9 (Version None)
Quarter: 2010Q2

REPORT INFORMATION
  Report Type: 
  Country: None (occurrence: None)
  Receive Date: 20100526
  Receipt Date: 20100518
  Transmission Date: 20101027
  Serious: Yes (Hospitalization)
  Sender: FDA-Public Use
  Company Number: IL-ROCHE-703927

PATIENT
  Sex: Female

DRUGS (13)
  1. CAPECITABINE [Suspect]
     Dosage: DOSE: 1000 MG/QM, TEMPORARILY INTERRUPTED
     Route: 048
     Dates: start: 20081126, end: 20090816
  2. CAPECITABINE [Suspect]
     Route: 048
     Dates: start: 20090902
  3. BLINDED WX-671 [Suspect]
     Dosage: TEMPORARILY INTERRUPTED
     Route: 048
     Dates: start: 20081126
  4. NORMITEN [Concomitant]
     Dosage: FREQUENCY: QD
     Route: 048
     Dates: start: 19880101
  5. ASPIRIN [Concomitant]
     Route: 048
     Dates: start: 20081024
  6. SIMOVIL [Concomitant]
     Route: 048
     Dates: start: 20081024
  7. LOSARTAN POTASSIUM [Concomitant]
     Route: 048
     Dates: start: 20081024
  8. BETACORTEN [Concomitant]
     Route: 061
     Dates: start: 20091217
  9. CETOMACROGOL 1000 [Concomitant]
     Dosage: DRUG REPORTED: FONALGON (CETOMACROGOL 1000)
     Route: 061
     Dates: start: 20090402
  10. DEXAMYCIN [Concomitant]
     Route: 047
     Dates: start: 20090513
  11. TEVACUTAN [Concomitant]
     Route: 061
     Dates: start: 20090801
  12. OFLOXACIN [Concomitant]
     Route: 047
     Dates: start: 20091117
  13. AREDIA [Concomitant]
     Route: 042
     Dates: start: 20071114

REACTIONS (1)
  - PANCREATITIS ACUTE [None]
